FAERS Safety Report 8617894-6 (Version None)
Quarter: 2012Q3

REPORT INFORMATION
  Report Type: 
  Country: None (occurrence: None)
  Receive Date: 20120824
  Receipt Date: 20120312
  Transmission Date: 20120928
  Serious: No
  Sender: FDA-Public Use
  Company Number: US-ASTRAZENECA-2012SE17045

PATIENT
  Age: 23 Year
  Sex: Female
  Weight: 79.4 kg

DRUGS (4)
  1. DEPO-PROVERA [Concomitant]
     Indication: CONTRACEPTION
  2. SYMBICORT [Suspect]
     Indication: ASTHMA
     Dosage: 2 PUFFS TWO TIMES A DAY
     Route: 055
     Dates: start: 20110901
  3. ALBUTEROL [Concomitant]
     Indication: ASTHMA
  4. NEBULIZATION [Concomitant]
     Indication: ASTHMA

REACTIONS (1)
  - BARBITURATES POSITIVE [None]
